FAERS Safety Report 22294461 (Version 1)
Quarter: 2023Q2

REPORT INFORMATION
  Report Type: Spontaneous
  Country: US (occurrence: US)
  Receive Date: 20230508
  Receipt Date: 20230508
  Transmission Date: 20230722
  Serious: No
  Sender: FDA-Public Use
  Company Number: US-APOTEX-2023AP005114

PATIENT
  Age: 67 Year
  Sex: Female

DRUGS (7)
  1. BRIMONIDINE TARTRATE/TIMOLOL MALEATE OPHTHALMIC SOLUTION [Suspect]
     Active Substance: BRIMONIDINE TARTRATE\TIMOLOL MALEATE
     Indication: Glaucoma
     Dosage: 4 GTT DROPS, QD (2 DROPS A DAY IN BOTH EYES)
     Route: 047
     Dates: start: 202302, end: 20230307
  2. BAUSCH + LOMB MOISTURE EYES [Concomitant]
     Indication: Eye irritation
     Dosage: UNK, PRN (AS NEEDED ON BOTH EYES)
     Route: 047
  3. LOSARTAN [Concomitant]
     Active Substance: LOSARTAN
     Indication: Hypertension
     Dosage: 12.5 MILLIGRAM, QD
     Route: 065
  4. LEVOTHYROXINE [Concomitant]
     Active Substance: LEVOTHYROXINE
     Indication: Thyroid disorder
     Dosage: 88 MICROGRAM
     Route: 065
  5. VITAMIN B12 [Concomitant]
     Active Substance: CYANOCOBALAMIN
     Indication: Supplementation therapy
     Dosage: UNK
     Route: 065
  6. VITAMIN B3 [Concomitant]
     Active Substance: NIACIN
     Indication: Supplementation therapy
     Dosage: UNK
     Route: 065
  7. ALLERTEC [CETIRIZINE] [Concomitant]
     Indication: Hypersensitivity
     Dosage: UNK, QD
     Route: 065

REACTIONS (7)
  - Conjunctivitis viral [Recovering/Resolving]
  - Ocular hyperaemia [Recovering/Resolving]
  - Product substitution issue [Unknown]
  - Eye pain [Recovering/Resolving]
  - Eye irritation [Recovering/Resolving]
  - Eye pruritus [Recovering/Resolving]
  - Vision blurred [Recovering/Resolving]

NARRATIVE: CASE EVENT DATE: 20230201
